FAERS Safety Report 6093316-7 (Version None)
Quarter: 2009Q1

REPORT INFORMATION
  Report Type: 
  Country: None (occurrence: None)
  Receive Date: 20090224
  Receipt Date: 20090224
  Transmission Date: 20090719
  Serious: No
  Sender: FDA-Public Use
  Company Number: None

PATIENT

DRUGS (1)
  1. ONE DAY VITAMIN [Suspect]

REACTIONS (12)
  - DIPLOPIA [None]
  - DIZZINESS [None]
  - DYSPNOEA [None]
  - EYE PAIN [None]
  - GLOSSODYNIA [None]
  - HEADACHE [None]
  - MALAISE [None]
  - MALNUTRITION [None]
  - OROPHARYNGEAL PAIN [None]
  - PRODUCT QUALITY ISSUE [None]
  - SWOLLEN TONGUE [None]
  - VISION BLURRED [None]
